FAERS Safety Report 16107072 (Version 1)
Quarter: 2019Q1

REPORT INFORMATION
  Report Type: Spontaneous
  Country: GB (occurrence: GB)
  Receive Date: 20190322
  Receipt Date: 20190322
  Transmission Date: 20190418
  Serious: Yes (Hospitalization, Disabling, Other)
  Sender: FDA-Public Use
  Company Number: GB-MYLANLABS-2019M1026432

PATIENT
  Age: 27 Year
  Sex: Female
  Weight: 40 kg

DRUGS (15)
  1. ZOPICLONE [Concomitant]
     Active Substance: ZOPICLONE
  2. SALBUTAMOL SULFATE [Concomitant]
     Active Substance: ALBUTEROL SULFATE
  3. PROMETHAZINE HYDROCHLORIDE. [Suspect]
     Active Substance: PROMETHAZINE HYDROCHLORIDE
     Indication: FIBROMYALGIA
     Dosage: 25 MILLIGRAM
     Route: 048
     Dates: start: 20180806, end: 20180807
  4. PROCHLORPERAZINE. [Concomitant]
     Active Substance: PROCHLORPERAZINE
  5. DICLOFENAC [Concomitant]
     Active Substance: DICLOFENAC
     Dosage: UNK
  6. MIRTAZAPINE. [Suspect]
     Active Substance: MIRTAZAPINE
     Indication: FIBROMYALGIA
     Dosage: 15 MILLIGRAM (15MG AND THEN 30MG FOR ONE NIGHT)
     Route: 048
     Dates: start: 20180822
  7. METOCLOPRAMIDE. [Concomitant]
     Active Substance: METOCLOPRAMIDE
  8. COCODAMOL [Concomitant]
     Active Substance: ACETAMINOPHEN\CODEINE PHOSPHATE
  9. CYCLIZINE [Concomitant]
     Active Substance: CYCLIZINE
  10. MIRTAZAPINE. [Suspect]
     Active Substance: MIRTAZAPINE
     Dosage: 30 MILLIGRAM, QD (30MG FOR ONE NIGHT)
     Route: 048
  11. AMITRIPTYLINE [Suspect]
     Active Substance: AMITRIPTYLINE
     Indication: FIBROMYALGIA
     Dosage: 10MG INCREASED TO 40MG OVER THAT TIME
     Route: 048
  12. ZOLPIDEM [Concomitant]
     Active Substance: ZOLPIDEM\ZOLPIDEM TARTRATE
     Dosage: UNK
  13. OMEPRAZOLE. [Concomitant]
     Active Substance: OMEPRAZOLE
  14. AMITRIPTYLINE [Suspect]
     Active Substance: AMITRIPTYLINE
     Dosage: 40 MILLIGRAM
     Route: 048
  15. DIAZEPAM. [Concomitant]
     Active Substance: DIAZEPAM

REACTIONS (8)
  - Hypoaesthesia [Recovered/Resolved]
  - Dysphagia [Recovered/Resolved]
  - Insomnia [Unknown]
  - Palpitations [Not Recovered/Not Resolved]
  - Dyspnoea [Recovering/Resolving]
  - Pruritus generalised [Recovered/Resolved]
  - Paralysis [Recovered/Resolved]
  - Restless legs syndrome [Recovering/Resolving]
